FAERS Safety Report 4969313-9 (Version None)
Quarter: 2006Q2

REPORT INFORMATION
  Report Type: 
  Country: None (occurrence: None)
  Receive Date: 20060411
  Receipt Date: 20060331
  Transmission Date: 20061013
  Serious: Yes (Life-Threatening, Hospitalization)
  Sender: FDA-Public Use
  Company Number: GB-JNJFOC-20060200984

PATIENT
  Age: 89 Year
  Sex: Male

DRUGS (7)
  1. DURAGESIC-50 [Suspect]
     Indication: OSTEOARTHRITIS
     Route: 062
  2. ASPIRIN [Concomitant]
     Route: 065
  3. SIMVASTATIN [Concomitant]
     Route: 065
  4. AMYTRIPTYLLINE [Concomitant]
     Route: 065
  5. TEMAZEPAM [Concomitant]
     Route: 065
  6. OMEPRAZOLE [Concomitant]
     Route: 065
  7. INDORAMIN [Concomitant]
     Route: 065

REACTIONS (2)
  - CARDIAC DISORDER [None]
  - RESPIRATORY DEPRESSION [None]
